FAERS Safety Report 13763231 (Version 1)
Quarter: 2017Q3

REPORT INFORMATION
  Report Type: Spontaneous
  Country: US (occurrence: US)
  Receive Date: 20170718
  Receipt Date: 20170718
  Transmission Date: 20171127
  Serious: Yes (Hospitalization, Other)
  Sender: FDA-Public Use
  Company Number: US-PFIZER INC-2017305745

PATIENT
  Sex: Male

DRUGS (1)
  1. FIBERCON [Suspect]
     Active Substance: CALCIUM POLYCARBOPHIL

REACTIONS (2)
  - Visual impairment [Unknown]
  - Eye disorder [Unknown]
